FAERS Safety Report 15829599 (Version 1)
Quarter: 2019Q1

REPORT INFORMATION
  Report Type: Spontaneous
  Country: US (occurrence: US)
  Receive Date: 20190115
  Receipt Date: 20190115
  Transmission Date: 20190417
  Serious: No
  Sender: FDA-Public Use
  Company Number: US-DEPOMED, INC.-US-2017DEP002415

PATIENT

DRUGS (3)
  1. ACARBOSE. [Concomitant]
     Active Substance: ACARBOSE
     Indication: HYPOGLYCAEMIA
     Dosage: 25 MG, BEFORE EVERY MEAL
     Route: 048
     Dates: start: 201708
  2. NUCYNTA [Suspect]
     Active Substance: TAPENTADOL HYDROCHLORIDE
     Indication: ROTATOR CUFF SYNDROME
     Dosage: 50 MG, BID, AS NEEDED
     Route: 048
     Dates: start: 20171209
  3. NUCYNTA [Suspect]
     Active Substance: TAPENTADOL HYDROCHLORIDE
     Indication: BACK PAIN

REACTIONS (2)
  - Wrong technique in product usage process [Unknown]
  - Rash [Recovering/Resolving]

NARRATIVE: CASE EVENT DATE: 201712
